FAERS Safety Report 7162787-7 (Version None)
Quarter: 2010Q4

REPORT INFORMATION
  Report Type: 
  Country: None (occurrence: None)
  Receive Date: 20101215
  Receipt Date: 20091217
  Transmission Date: 20110411
  Serious: Yes (Other)
  Sender: FDA-Public Use
  Company Number: DE-PFIZER INC-2009311525

PATIENT
  Age: 31 Year
  Sex: Female

DRUGS (1)
  1. MINPROSTIN [Suspect]
     Dosage: UNK

REACTIONS (1)
  - VASCULITIS [None]
